FAERS Safety Report 6095671-0 (Version None)
Quarter: 2009Q1

REPORT INFORMATION
  Report Type: 
  Country: None (occurrence: None)
  Receive Date: 20090227
  Receipt Date: 20080603
  Transmission Date: 20090719
  Serious: No
  Sender: FDA-Public Use
  Company Number: A0728810A

PATIENT
  Age: 45 Year
  Sex: Female

DRUGS (14)
  1. LAMICTAL [Suspect]
     Indication: BIPOLAR DISORDER
     Dosage: 150MG PER DAY
     Route: 048
     Dates: start: 20070201
  2. ANTIBIOTIC [Suspect]
  3. OMNICEF [Concomitant]
  4. SINGULAIR [Concomitant]
  5. AEROBID [Concomitant]
  6. FLONASE [Concomitant]
  7. ALLEGRA [Concomitant]
  8. PROGESTIN INJ [Concomitant]
  9. SYNTHROID [Concomitant]
  10. STRATTERA [Concomitant]
  11. KLONOPIN [Concomitant]
  12. LUNESTA [Concomitant]
  13. CONTRACEPTIVE [Concomitant]
     Route: 062
  14. PREDNISONE TAPER [Concomitant]

REACTIONS (1)
  - RASH [None]
